FAERS Safety Report 5549519-0 (Version None)
Quarter: 2007Q4

REPORT INFORMATION
  Report Type: 
  Country: None (occurrence: None)
  Receive Date: 20071212
  Receipt Date: 20071203
  Transmission Date: 20080405
  Serious: Yes (Hospitalization)
  Sender: FDA-Public Use
  Company Number: PHHO2007FR19972

PATIENT
  Age: 62 Year
  Sex: Female

DRUGS (3)
  1. NEORAL [Suspect]
     Indication: RENAL TRANSPLANT
     Dosage: 150 MG / DAY
     Route: 048
     Dates: start: 20070311
  2. PREDNISONE [Concomitant]
     Indication: RENAL TRANSPLANT
     Dates: start: 20070308
  3. MYCOPHENOLATE MOFETIL [Concomitant]
     Indication: RENAL TRANSPLANT
     Dates: start: 20070306, end: 20071108

REACTIONS (1)
  - LUNG DISORDER [None]
